FAERS Safety Report 16986082 (Version 1)
Quarter: 2019Q4

REPORT INFORMATION
  Report Type: Spontaneous
  Country: US (occurrence: US)
  Receive Date: 20190918
  Receipt Date: 20190918
  Transmission Date: 20200122
  Serious: Yes (Hospitalization)
  Sender: FDA-Public Use
  Company Number: None

PATIENT
  Age: 76 Year
  Sex: Male

DRUGS (20)
  1. CALCIUM [Concomitant]
     Active Substance: CALCIUM
  2. QUETIAPINE. [Concomitant]
     Active Substance: QUETIAPINE
  3. IPRATROPRIUM [Concomitant]
     Active Substance: IPRATROPIUM
  4. ISOSORB MONONITRATE [Concomitant]
  5. PEPCID [Concomitant]
     Active Substance: FAMOTIDINE
  6. PREDNISONE. [Concomitant]
     Active Substance: PREDNISONE
  7. COENZYME Q10 [Concomitant]
     Active Substance: UBIDECARENONE
  8. ALENDRONATE [Concomitant]
     Active Substance: ALENDRONATE SODIUM
  9. AZELASTINE. [Concomitant]
     Active Substance: AZELASTINE HYDROCHLORIDE
  10. TOBRAMYCIN 300MG/5ML 20MLX4NEB [Suspect]
     Active Substance: TOBRAMYCIN
     Indication: INFECTION
     Route: 048
     Dates: start: 20180125, end: 20190917
  11. ASPIRIN LOW DOSE [Concomitant]
     Active Substance: ASPIRIN
  12. ROSUVASTATIN. [Concomitant]
     Active Substance: ROSUVASTATIN
  13. FUROSEMIDE. [Concomitant]
     Active Substance: FUROSEMIDE
  14. HYDROCHLOROTHIAZIDE. [Concomitant]
     Active Substance: HYDROCHLOROTHIAZIDE
  15. VENTOLIN [Concomitant]
     Active Substance: ALBUTEROL SULFATE
  16. PROPRANOLOL [Concomitant]
     Active Substance: PROPRANOLOL HYDROCHLORIDE
  17. TAMSULOSIN [Concomitant]
     Active Substance: TAMSULOSIN
  18. NAPROXEN. [Concomitant]
     Active Substance: NAPROXEN
  19. DONEPEZIL. [Concomitant]
     Active Substance: DONEPEZIL
  20. METOPROLOL. [Concomitant]
     Active Substance: METOPROLOL

REACTIONS (3)
  - Chronic obstructive pulmonary disease [None]
  - Tooth infection [None]
  - Post procedural infection [None]

NARRATIVE: CASE EVENT DATE: 20190829
